FAERS Safety Report 16825484 (Version 2)
Quarter: 2019Q4

REPORT INFORMATION
  Report Type: Spontaneous
  Country: JP (occurrence: JP)
  Receive Date: 20190919
  Receipt Date: 20191015
  Transmission Date: 20200122
  Serious: Yes (Disabling, Other)
  Sender: FDA-Public Use
  Company Number: JP-SA-2019SA253357

PATIENT
  Age: 49 Year
  Sex: Male
  Weight: 60.6 kg

DRUGS (12)
  1. ELPLAT [Suspect]
     Active Substance: OXALIPLATIN
     Dosage: 100 MG/M2, QD
     Route: 041
     Dates: start: 20190220, end: 20190305
  2. ELPLAT [Suspect]
     Active Substance: OXALIPLATIN
     Dosage: 100 MG/M2, QD
     Route: 041
     Dates: start: 20190403, end: 20190416
  3. ELPLAT [Suspect]
     Active Substance: OXALIPLATIN
     Indication: GASTRIC CANCER
     Dosage: 100 MG/M2, QD
     Route: 041
     Dates: start: 20181212, end: 20181212
  4. DEXAMETHASONE SODIUM PHOSPHATE. [Concomitant]
     Active Substance: DEXAMETHASONE SODIUM PHOSPHATE
     Dosage: UNK
     Route: 065
     Dates: start: 20181212, end: 20190515
  5. TS-1 [Concomitant]
     Active Substance: GIMERACIL\OTERACIL\TEGAFUR
     Indication: GASTRIC CANCER
     Dosage: UNK UNK, UNK
     Route: 048
     Dates: start: 20180812, end: 20190528
  6. ELPLAT [Suspect]
     Active Substance: OXALIPLATIN
     Dosage: 100 MG/M2, QD
     Route: 041
     Dates: start: 20190130, end: 20190212
  7. ELPLAT [Suspect]
     Active Substance: OXALIPLATIN
     Dosage: 100 MG/M2, QD
     Route: 041
     Dates: start: 20190313, end: 20190326
  8. ELPLAT [Suspect]
     Active Substance: OXALIPLATIN
     Dosage: 100 MG/M2, QD
     Route: 041
     Dates: start: 20190515, end: 20190528
  9. TS-1 [Concomitant]
     Active Substance: GIMERACIL\OTERACIL\TEGAFUR
     Dosage: UNK
     Route: 048
     Dates: start: 20190710
  10. PALONOSETRON HYDROCHLORIDE. [Concomitant]
     Active Substance: PALONOSETRON HYDROCHLORIDE
     Dosage: UNK
     Route: 065
     Dates: start: 20181212, end: 20190515
  11. ELPLAT [Suspect]
     Active Substance: OXALIPLATIN
     Dosage: 100 MG/M2, QD
     Route: 041
     Dates: start: 20190109, end: 20190122
  12. ELPLAT [Suspect]
     Active Substance: OXALIPLATIN
     Dosage: 100 MG/M2, QD
     Route: 041
     Dates: start: 20190424, end: 20190507

REACTIONS (2)
  - Hepatic cirrhosis [Recovering/Resolving]
  - Platelet count decreased [Recovering/Resolving]

NARRATIVE: CASE EVENT DATE: 20190610
